FAERS Safety Report 4891560-5 (Version None)
Quarter: 2006Q1

REPORT INFORMATION
  Report Type: 
  Country: None (occurrence: None)
  Receive Date: 20060125
  Receipt Date: 20050303
  Transmission Date: 20060701
  Serious: Yes (Death, Hospitalization, Other)
  Sender: FDA-Public Use
  Company Number: US-MERCK-0503USA00793

PATIENT
  Age: 78 Year
  Sex: Female
  Weight: 46 kg

DRUGS (12)
  1. VIOXX [Suspect]
     Indication: MONARTHRITIS
     Route: 048
     Dates: start: 19990101, end: 20040101
  2. VIOXX [Suspect]
     Route: 048
     Dates: start: 20010701
  3. PERCOCET [Concomitant]
     Route: 065
  4. TRAZODONE HYDROCHLORIDE [Concomitant]
     Route: 065
  5. DARVOCET-N 50 [Concomitant]
     Route: 065
  6. NORCO [Concomitant]
     Route: 065
  7. PEPCID [Concomitant]
     Route: 065
     Dates: start: 20010709
  8. ZANTAC [Concomitant]
     Route: 065
     Dates: end: 20010709
  9. TYLENOL (CAPLET) [Concomitant]
     Route: 065
  10. OXYCONTIN [Concomitant]
     Route: 065
  11. CELEXA [Concomitant]
     Route: 065
  12. LORAZEPAM [Concomitant]
     Route: 065

REACTIONS (49)
  - ABDOMINAL PAIN [None]
  - AMAUROSIS FUGAX [None]
  - ANAEMIA [None]
  - ANXIETY [None]
  - AORTIC VALVE INCOMPETENCE [None]
  - ARTERIAL OCCLUSIVE DISEASE [None]
  - ASTHMA [None]
  - BALANCE DISORDER [None]
  - BLINDNESS UNILATERAL [None]
  - BLOOD ALKALINE PHOSPHATASE INCREASED [None]
  - BLOOD AMYLASE INCREASED [None]
  - BLOOD PRESSURE INADEQUATELY CONTROLLED [None]
  - BLOOD THYROID STIMULATING HORMONE INCREASED [None]
  - CAROTID ARTERY OCCLUSION [None]
  - CEREBRAL ATROPHY [None]
  - CEREBROVASCULAR ACCIDENT [None]
  - CEREBROVASCULAR DISORDER [None]
  - CHRONIC OBSTRUCTIVE PULMONARY DISEASE [None]
  - CONSTIPATION [None]
  - DEATH [None]
  - DILATATION ATRIAL [None]
  - DIVERTICULUM [None]
  - DIZZINESS [None]
  - DUODENAL ULCER [None]
  - DUODENAL ULCER HAEMORRHAGE [None]
  - EMOTIONAL DISTRESS [None]
  - FATIGUE [None]
  - GAIT DISTURBANCE [None]
  - GASTRITIS [None]
  - GASTROOESOPHAGEAL REFLUX DISEASE [None]
  - HAEMOGLOBIN DECREASED [None]
  - HIATUS HERNIA [None]
  - HYPERAMYLASAEMIA [None]
  - HYPERTENSION [None]
  - INJURY [None]
  - INSOMNIA [None]
  - METABOLIC ACIDOSIS [None]
  - OSTEITIS DEFORMANS [None]
  - OSTEOARTHRITIS [None]
  - OSTEOPOROSIS [None]
  - REFUSAL OF TREATMENT BY PATIENT [None]
  - RETINAL ARTERY OCCLUSION [None]
  - RHINITIS ALLERGIC [None]
  - SLEEP DISORDER [None]
  - TRANSIENT ISCHAEMIC ATTACK [None]
  - VERTIGO POSITIONAL [None]
  - VISUAL FIELD DEFECT [None]
  - WHITE BLOOD CELL COUNT INCREASED [None]
  - WRIST FRACTURE [None]
